FAERS Safety Report 25025503 (Version 2)
Quarter: 2025Q3

REPORT INFORMATION
  Report Type: Spontaneous
  Country: BR (occurrence: BR)
  Receive Date: 20250228
  Receipt Date: 20250803
  Transmission Date: 20251021
  Serious: Yes (Hospitalization, Other)
  Sender: ALEXION PHARMACEUTICALS
  Company Number: BR-ASTRAZENECA-202502SAM020105BR

PATIENT
  Age: 49 Year
  Sex: Female
  Weight: 102 kg

DRUGS (14)
  1. DAPAGLIFLOZIN [Suspect]
     Active Substance: DAPAGLIFLOZIN
     Dosage: 1 DOSAGE FORM, QD
     Route: 065
  2. COVID-19 VACCINE NOS [Suspect]
     Active Substance: COVID-19 VACCINE
     Route: 065
  3. LOSARTAN [Concomitant]
     Active Substance: LOSARTAN
     Route: 065
  4. INSULIN NOS [Concomitant]
     Active Substance: INSULIN NOS
     Route: 065
  5. NPH INSULIN [Concomitant]
     Active Substance: INSULIN BEEF
     Route: 065
  6. AMITRIPTYLINE [Concomitant]
     Active Substance: AMITRIPTYLINE
     Route: 065
  7. SULFASALAZINE [Concomitant]
     Active Substance: SULFASALAZINE
     Route: 065
  8. INFLIXIMAB [Concomitant]
     Active Substance: INFLIXIMAB
     Indication: Colitis ulcerative
  9. INFLIXIMAB [Concomitant]
     Active Substance: INFLIXIMAB
  10. INFLIXIMAB [Concomitant]
     Active Substance: INFLIXIMAB
  11. FOLIC ACID [Concomitant]
     Active Substance: FOLIC ACID
  12. GLUCOPHAGE XR [Concomitant]
     Active Substance: METFORMIN HYDROCHLORIDE
  13. GLIFAGE [Concomitant]
     Active Substance: METFORMIN HYDROCHLORIDE
  14. AMLODIPINE [Concomitant]
     Active Substance: AMLODIPINE BESYLATE

REACTIONS (15)
  - Carpal tunnel syndrome [Recovered/Resolved]
  - Colitis ulcerative [Unknown]
  - Type 2 diabetes mellitus [Unknown]
  - Ankylosing spondylitis [Unknown]
  - COVID-19 [Recovered/Resolved]
  - Dyspnoea [Unknown]
  - Pain [Unknown]
  - Fatigue [Unknown]
  - Pyrexia [Recovered/Resolved]
  - Hypertension [Unknown]
  - Muscle spasms [Unknown]
  - Influenza [Unknown]
  - Rash vesicular [Unknown]
  - Skin exfoliation [Unknown]
  - Intentional dose omission [Unknown]

NARRATIVE: CASE EVENT DATE: 20231122
